FAERS Safety Report 14632722 (Version 1)
Quarter: 2018Q1

REPORT INFORMATION
  Report Type: Spontaneous
  Country: US (occurrence: US)
  Receive Date: 20180313
  Receipt Date: 20180313
  Transmission Date: 20180509
  Serious: Yes (Other)
  Sender: FDA-Public Use
  Company Number: US-ALLERGAN-1813116US

PATIENT
  Age: 68 Year
  Sex: Female

DRUGS (2)
  1. GATIFLOXACIN SESQUIHYDRATE [Suspect]
     Active Substance: GATIFLOXACIN
     Indication: BLEBITIS
     Dosage: UNK, Q2HR
     Route: 047
  2. GATIFLOXACIN SESQUIHYDRATE [Suspect]
     Active Substance: GATIFLOXACIN
     Indication: CONJUNCTIVITIS

REACTIONS (2)
  - Off label use [Unknown]
  - Clostridium difficile colitis [Unknown]
